FAERS Safety Report 10098104 (Version 1)
Quarter: 2014Q2

REPORT INFORMATION
  Report Type: Spontaneous
  Country: GB (occurrence: None)
  Receive Date: 20140421
  Receipt Date: 20140421
  Transmission Date: 20141212
  Serious: Yes (Life-Threatening, Hospitalization)
  Sender: FDA-Public Use
  Company Number: AUR-APL-2014-04693

PATIENT
  Age: 68 Year
  Sex: Female
  Weight: 90 kg

DRUGS (8)
  1. LISINOPRIL (LISINOPRIL) [Suspect]
     Indication: HYPERTENSION
     Dosage: 20 MG (20 MG, 1 IN 1 D), ORAL
     Route: 048
  2. CLENIL MODULITE (BECLOMETASONE DIPROPIONATE) [Concomitant]
  3. FELODIPINE (FELODIPINE) [Concomitant]
  4. METFORMIN (METFORMIN) [Concomitant]
  5. PIOGLITAZONE (PIOGLITAZONE) [Concomitant]
  6. QUININE (QUININE) [Concomitant]
  7. SALBUTAMOL (SALBUTAMOL) [Concomitant]
  8. SIMVASTATIN (SIMVASTATIN) [Concomitant]

REACTIONS (3)
  - Angioedema [None]
  - Product substitution issue [None]
  - Product quality issue [None]
